FAERS Safety Report 8012743-1 (Version None)
Quarter: 2011Q4

REPORT INFORMATION
  Report Type: 
  Country: None (occurrence: None)
  Receive Date: 20111229
  Receipt Date: 20111220
  Transmission Date: 20120403
  Serious: Yes (Death, Other)
  Sender: FDA-Public Use
  Company Number: JP-B.I. PHARMACEUTICALS,INC./RIDGEFIELD-2011-EU-01259GD

PATIENT
  Sex: Female

DRUGS (2)
  1. HEPARIN [Suspect]
     Indication: CEREBRAL VENOUS THROMBOSIS
  2. DABIGATRAN ETEXILATE [Suspect]
     Indication: CEREBRAL VENOUS THROMBOSIS
     Dosage: 220 MG

REACTIONS (2)
  - INTRAVENTRICULAR HAEMORRHAGE [None]
  - SUBARACHNOID HAEMORRHAGE [None]
